FAERS Safety Report 5025970-2 (Version None)
Quarter: 2006Q2

REPORT INFORMATION
  Report Type: 
  Country: None (occurrence: None)
  Receive Date: 20060614
  Receipt Date: 20060607
  Transmission Date: 20061013
  Serious: Yes (Other)
  Sender: FDA-Public Use
  Company Number: 2006AP02690

PATIENT
  Sex: Female

DRUGS (3)
  1. IRESSA [Suspect]
     Indication: LUNG NEOPLASM MALIGNANT
     Route: 048
     Dates: start: 20060208, end: 20060201
  2. IRESSA [Suspect]
     Route: 048
  3. IRESSA [Suspect]
     Route: 048
     Dates: end: 20060510

REACTIONS (5)
  - DYSPNOEA [None]
  - HEPATIC FUNCTION ABNORMAL [None]
  - INTERSTITIAL LUNG DISEASE [None]
  - PNEUMONIA [None]
  - PRODUCTIVE COUGH [None]
